FAERS Safety Report 9474788 (Version 2)
Quarter: 2013Q3

REPORT INFORMATION
  Report Type: Spontaneous
  Country: US (occurrence: US)
  Receive Date: 20130823
  Receipt Date: 20130912
  Transmission Date: 20140515
  Serious: No
  Sender: FDA-Public Use
  Company Number: US-PFIZER INC-2013240431

PATIENT
  Age: 60 Year
  Sex: Female
  Weight: 61 kg

DRUGS (2)
  1. ESTRING [Suspect]
     Indication: URINARY INCONTINENCE
     Dosage: 2 MG, ONCE IN THREE MONTHS
     Route: 067
     Dates: start: 2010
  2. ESTRING [Suspect]
     Indication: MENOPAUSE
     Dosage: UNK
     Route: 067
     Dates: start: 20130618

REACTIONS (1)
  - Drug ineffective for unapproved indication [Unknown]
